FAERS Safety Report 7429045-4 (Version None)
Quarter: 2011Q2

REPORT INFORMATION
  Report Type: 
  Country: None (occurrence: None)
  Receive Date: 20110421
  Receipt Date: 20110412
  Transmission Date: 20111010
  Serious: Yes (Disabling)
  Sender: FDA-Public Use
  Company Number: US-ROCHE-768201

PATIENT
  Sex: Female
  Weight: 77.1 kg

DRUGS (10)
  1. CLIMARA [Concomitant]
     Dosage: INDICATION: HORMONAL PATCH
  2. RELAFEN [Concomitant]
     Indication: RHEUMATOID ARTHRITIS
     Dosage: DRUG: RALAFEN
  3. METHOTREXATE [Concomitant]
     Indication: RHEUMATOID ARTHRITIS
     Dosage: DOSE: 0.5 INJECTION WEEKLY
  4. ACTEMRA [Suspect]
     Dosage: FORM: INFUSION
     Route: 042
     Dates: start: 20110316
  5. ACTEMRA [Suspect]
     Indication: RHEUMATOID ARTHRITIS
     Dosage: FORM: INFUSION
     Route: 042
     Dates: start: 20110216, end: 20110216
  6. ARTANE [Concomitant]
     Indication: MUSCLE DISORDER
  7. PREDNISONE [Concomitant]
     Indication: RHEUMATOID ARTHRITIS
  8. ENALAPRIL MALEATE [Concomitant]
  9. NEXIUM [Concomitant]
     Indication: RHEUMATOID ARTHRITIS
  10. ESTRACE [Concomitant]

REACTIONS (6)
  - ABDOMINAL PAIN UPPER [None]
  - NAUSEA [None]
  - CHEST DISCOMFORT [None]
  - ABDOMINAL DISCOMFORT [None]
  - DEHYDRATION [None]
  - FATIGUE [None]
